FAERS Safety Report 5918864-9 (Version None)
Quarter: 2008Q4

REPORT INFORMATION
  Report Type: 
  Country: None (occurrence: None)
  Receive Date: 20081015
  Receipt Date: 20080814
  Transmission Date: 20090506
  Serious: No
  Sender: FDA-Public Use
  Company Number: US-BAYER-200831538NA

PATIENT
  Age: 40 Year
  Sex: Female

DRUGS (3)
  1. OCELLA [Suspect]
     Indication: CONTRACEPTION
     Route: 048
     Dates: start: 20080728, end: 20080806
  2. ELMIRON [Concomitant]
     Indication: CYSTITIS NONINFECTIVE
     Route: 048
     Dates: start: 20080813
  3. PROZAC [Concomitant]
     Indication: DEPRESSION

REACTIONS (5)
  - BLEPHARITIS [None]
  - ERYTHEMA OF EYELID [None]
  - EYE SWELLING [None]
  - PREMENSTRUAL SYNDROME [None]
  - PRURITUS GENERALISED [None]
